FAERS Safety Report 7472725-5 (Version None)
Quarter: 2011Q2

REPORT INFORMATION
  Report Type: 
  Country: None (occurrence: None)
  Receive Date: 20110511
  Receipt Date: 20110503
  Transmission Date: 20111010
  Serious: Yes (Other)
  Sender: FDA-Public Use
  Company Number: DK-PFIZER INC-2011040248

PATIENT
  Age: 19 Year
  Sex: Female
  Weight: 80 kg

DRUGS (3)
  1. ZIPRASIDONE HYDROCHLORIDE [Suspect]
     Indication: SCHIZOPHRENIA
     Dosage: 40 MG, 2X/DAY
     Dates: start: 20110214, end: 20110201
  2. ZIPRASIDONE HYDROCHLORIDE [Suspect]
     Indication: BIPOLAR I DISORDER
  3. RISPERIDONE [Concomitant]
     Indication: SCHIZOPHRENIA

REACTIONS (7)
  - MALAISE [None]
  - DRUG HYPERSENSITIVITY [None]
  - PHOTOPHOBIA [None]
  - HALLUCINATION, VISUAL [None]
  - SOMNOLENCE [None]
  - WITHDRAWAL SYNDROME [None]
  - NAUSEA [None]
